FAERS Safety Report 24834405 (Version 2)
Quarter: 2025Q1

REPORT INFORMATION
  Report Type: Report from Study
  Country: GB (occurrence: GB)
  Receive Date: 20250113
  Receipt Date: 20250320
  Transmission Date: 20250409
  Serious: Yes (Hospitalization)
  Sender: JOHNSON AND JOHNSON
  Company Number: GB-JNJFOC-20250114243

PATIENT
  Age: 70 Year
  Sex: Male
  Weight: 92 kg

DRUGS (15)
  1. TREMFYA [Suspect]
     Active Substance: GUSELKUMAB
     Indication: Psoriasis
     Route: 065
     Dates: start: 20230213, end: 20240911
  2. TREMFYA [Suspect]
     Active Substance: GUSELKUMAB
  3. TREMFYA [Suspect]
     Active Substance: GUSELKUMAB
  4. TEMAZEPAM [Concomitant]
     Active Substance: TEMAZEPAM
     Dates: start: 19980710
  5. ASPIRIN [Concomitant]
     Active Substance: ASPIRIN
     Dates: start: 20100326
  6. ATORVASTATIN [Concomitant]
     Active Substance: ATORVASTATIN
     Dates: start: 20100407
  7. LANSOPRAZOLE [Concomitant]
     Active Substance: LANSOPRAZOLE
     Dates: start: 20110201
  8. NICORANDIL [Concomitant]
     Active Substance: NICORANDIL
     Dates: start: 20111230
  9. THIAMINE [Concomitant]
     Active Substance: THIAMINE
     Dates: start: 20150907
  10. MORPHINE [Concomitant]
     Active Substance: MORPHINE
     Dates: start: 20150907, end: 20241029
  11. TRELEGY ELLIPTA [Concomitant]
     Active Substance: FLUTICASONE FUROATE\UMECLIDINIUM BROMIDE\VILANTEROL TRIFENATATE
     Dates: start: 20240611
  12. FOLIC ACID [Concomitant]
     Active Substance: FOLIC ACID
     Dates: start: 20240611
  13. PREGABALIN [Concomitant]
     Active Substance: PREGABALIN
     Dates: start: 20240611
  14. DULOXETINE [Concomitant]
     Active Substance: DULOXETINE
     Dates: start: 20240611
  15. DIHYDROCODEINE [Concomitant]
     Active Substance: DIHYDROCODEINE
     Dates: start: 20241029

REACTIONS (3)
  - Pneumonia [Recovered/Resolved]
  - Craniofacial fracture [Recovered/Resolved]
  - Alcohol problem [Recovered/Resolved]

NARRATIVE: CASE EVENT DATE: 20241007
